FAERS Safety Report 6689272-0 (Version None)
Quarter: 2010Q2

REPORT INFORMATION
  Report Type: 
  Country: None (occurrence: None)
  Receive Date: 20100416
  Receipt Date: 20100406
  Transmission Date: 20101027
  Serious: Yes (Death, Hospitalization)
  Sender: FDA-Public Use
  Company Number: A-US2010-35320

PATIENT
  Age: 74 Year
  Sex: Female
  Weight: 49 kg

DRUGS (2)
  1. VENTAVIS [Suspect]
     Indication: PULMONARY ARTERIAL HYPERTENSION
     Dosage: RESPIRATORY
     Route: 055
     Dates: start: 20080901, end: 20100301
  2. SILDENAFIL CITRATE [Concomitant]

REACTIONS (9)
  - ASCITES [None]
  - ATRIAL FIBRILLATION [None]
  - FLUID OVERLOAD [None]
  - HEPATIC ENCEPHALOPATHY [None]
  - JUGULAR VEIN DISTENSION [None]
  - OEDEMA [None]
  - PNEUMONIA [None]
  - RIGHT VENTRICULAR FAILURE [None]
  - TACHYCARDIA [None]
